FAERS Safety Report 8905840 (Version 1)
Quarter: 2012Q4

REPORT INFORMATION
  Report Type: 
  Country: AU (occurrence: AU)
  Receive Date: 20121113
  Receipt Date: 20121113
  Transmission Date: 20130627
  Serious: Yes (Disabling)
  Sender: FDA-Public Use
  Company Number: AU-PFIZER INC-2012226015

PATIENT
  Age: 60 Year
  Sex: Female
  Weight: 60 kg

DRUGS (4)
  1. LIPITOR [Suspect]
     Indication: CHOLESTEROL
     Dosage: 20 mg, 1x/day
     Route: 048
     Dates: start: 20120823
  2. NEXIUM [Concomitant]
     Dosage: 40 tablet
     Route: 048
  3. SPIRIVA [Concomitant]
     Dosage: 18 ug, capsule
     Route: 048
  4. RAMIPRIL [Concomitant]
     Dosage: 2.5 tablet
     Route: 048

REACTIONS (3)
  - Urinary incontinence [Unknown]
  - Pollakiuria [Unknown]
  - Urine output increased [Unknown]
